FAERS Safety Report 15297592 (Version 3)
Quarter: 2018Q3

REPORT INFORMATION
  Report Type: Spontaneous
  Country: IT (occurrence: IT)
  Receive Date: 20180820
  Receipt Date: 20180928
  Transmission Date: 20181010
  Serious: Yes (Life-Threatening, Other)
  Sender: FDA-Public Use
  Company Number: IT-PFIZER INC-2018330922

PATIENT
  Sex: Female

DRUGS (2)
  1. FULVESTRANT. [Concomitant]
     Active Substance: FULVESTRANT
     Indication: HORMONE THERAPY
     Dosage: UNK
     Dates: start: 201310
  2. PACLITAXEL. [Suspect]
     Active Substance: PACLITAXEL
     Indication: BREAST CANCER METASTATIC
     Dosage: 80 MG/M2, CYCLIC (80 MG/M2 WEEKLY, AFTER 6 CYCLES)

REACTIONS (3)
  - Neurotoxicity [Unknown]
  - Neutropenia [Unknown]
  - Catheter site thrombosis [Unknown]
